FAERS Safety Report 5813645-9 (Version None)
Quarter: 2008Q3

REPORT INFORMATION
  Report Type: 
  Country: None (occurrence: None)
  Receive Date: 20080717
  Receipt Date: 20080710
  Transmission Date: 20090109
  Serious: Yes (Congenital Anomaly)
  Sender: FDA-Public Use
  Company Number: A0737028A

PATIENT
  Sex: Female
  Weight: 3.4 kg

DRUGS (4)
  1. COMBIVIR [Suspect]
     Indication: HIV INFECTION
     Dosage: 1TAB TWICE PER DAY
     Dates: start: 20071003
  2. RETROVIR [Suspect]
     Dates: start: 20080228
  3. KALETRA [Concomitant]
     Indication: HIV INFECTION
     Dosage: 2TAB TWICE PER DAY
     Dates: start: 20071003
  4. MACROBID [Concomitant]

REACTIONS (8)
  - ANAEMIA [None]
  - ASCITES [None]
  - CAESAREAN SECTION [None]
  - DRUG EXPOSURE DURING PREGNANCY [None]
  - FOETAL HEART RATE DECREASED [None]
  - HYDROCEPHALUS [None]
  - HYDROPS FOETALIS [None]
  - PREMATURE BABY [None]
